FAERS Safety Report 21071247 (Version 1)
Quarter: 2022Q3

REPORT INFORMATION
  Report Type: Spontaneous
  Country: RU (occurrence: None)
  Receive Date: 20220712
  Receipt Date: 20220712
  Transmission Date: 20221027
  Serious: Yes (Other)
  Sender: FDA-Public Use
  Company Number: 2022A245619

PATIENT
  Sex: Female

DRUGS (1)
  1. EVUSHELD [Suspect]
     Active Substance: CILGAVIMAB\TIXAGEVIMAB
     Indication: Immunisation
     Dosage: ONCE ONCE/SINGLE ADMINISTRATION
     Route: 030
     Dates: start: 20220624

REACTIONS (4)
  - Pyrexia [Recovering/Resolving]
  - Rhinorrhoea [Recovering/Resolving]
  - Productive cough [Recovering/Resolving]
  - Asthenia [Recovering/Resolving]

NARRATIVE: CASE EVENT DATE: 20220625
